FAERS Safety Report 6270700-X (Version None)
Quarter: 2009Q3

REPORT INFORMATION
  Report Type: 
  Country: None (occurrence: None)
  Receive Date: 20090716
  Receipt Date: 20090626
  Transmission Date: 20100115
  Serious: Yes (Hospitalization)
  Sender: FDA-Public Use
  Company Number: DE-GENENTECH-286353

PATIENT
  Sex: Female
  Weight: 85 kg

DRUGS (13)
  1. RANIBIZUMAB [Suspect]
     Indication: MACULAR OEDEMA
     Route: 031
  2. VOTUM (GERMANY) [Concomitant]
     Indication: DRUG USE FOR UNKNOWN INDICATION
  3. NEBIVOLOL HCL [Concomitant]
     Indication: DRUG USE FOR UNKNOWN INDICATION
  4. TORASEMIDE [Concomitant]
     Indication: DRUG USE FOR UNKNOWN INDICATION
  5. ISOSORBIDE DINITRATE [Concomitant]
     Indication: DRUG USE FOR UNKNOWN INDICATION
  6. AMIODARONE HCL [Concomitant]
     Indication: DRUG USE FOR UNKNOWN INDICATION
  7. GABAPENTIN [Concomitant]
     Indication: DRUG USE FOR UNKNOWN INDICATION
  8. LEVOTHYROXINE SODIUM [Concomitant]
     Indication: DRUG USE FOR UNKNOWN INDICATION
  9. MARCUMAR [Concomitant]
     Indication: DRUG USE FOR UNKNOWN INDICATION
  10. SIMVASTATIN [Concomitant]
     Indication: DRUG USE FOR UNKNOWN INDICATION
  11. ACTRAPID [Concomitant]
     Indication: DRUG USE FOR UNKNOWN INDICATION
  12. TRIMIPRAMINE MALEATE [Concomitant]
     Indication: DRUG USE FOR UNKNOWN INDICATION
  13. TRAMADOL HCL [Concomitant]
     Indication: DRUG USE FOR UNKNOWN INDICATION

REACTIONS (6)
  - ATAXIA [None]
  - COORDINATION ABNORMAL [None]
  - FATIGUE [None]
  - ISCHAEMIC CEREBRAL INFARCTION [None]
  - MENINGISM [None]
  - PARAESTHESIA [None]
